FAERS Safety Report 17757219 (Version 1)
Quarter: 2020Q2

REPORT INFORMATION
  Report Type: Spontaneous
  Country: CN (occurrence: CN)
  Receive Date: 20200507
  Receipt Date: 20200507
  Transmission Date: 20200714
  Serious: Yes (Other)
  Sender: FDA-Public Use
  Company Number: CN-ROCHE-2583786

PATIENT
  Sex: Female
  Weight: 66 kg

DRUGS (5)
  1. XELODA [Suspect]
     Active Substance: CAPECITABINE
     Indication: RECTAL CANCER
     Route: 048
     Dates: start: 20200324
  2. GLUCOSE [Concomitant]
     Active Substance: DEXTROSE
     Dosage: SOLVENT
     Route: 041
     Dates: start: 20200324
  3. ONDANSETRON [Concomitant]
     Active Substance: ONDANSETRON
     Dosage: PREVENT ANTIEMESIS
     Route: 041
     Dates: start: 20200324
  4. METOCLOPRAMIDE. [Concomitant]
     Active Substance: METOCLOPRAMIDE
     Dosage: PREVENT ANTIEMESIS
     Route: 030
     Dates: start: 20200324
  5. OXALIPLATIN. [Suspect]
     Active Substance: OXALIPLATIN
     Indication: RECTAL CANCER
     Route: 041
     Dates: start: 20200324

REACTIONS (4)
  - Postmenopausal haemorrhage [Unknown]
  - Diarrhoea [Recovered/Resolved]
  - Vomiting [Recovered/Resolved]
  - Nausea [Recovered/Resolved]
